FAERS Safety Report 19458498 (Version 1)
Quarter: 2021Q2

REPORT INFORMATION
  Report Type: Spontaneous
  Country: US (occurrence: US)
  Receive Date: 20210624
  Receipt Date: 20210624
  Transmission Date: 20210717
  Serious: Yes (Other)
  Sender: FDA-Public Use
  Company Number: US-PFIZER INC-2021468344

PATIENT
  Age: 43 Year
  Sex: Male
  Weight: 122.47 kg

DRUGS (1)
  1. XELJANZ XR [Suspect]
     Active Substance: TOFACITINIB CITRATE
     Indication: PSORIATIC ARTHROPATHY
     Dosage: 11 MG, 1X/DAY (STARTED 4 MONTHS AGO)
     Dates: start: 2021

REACTIONS (2)
  - Tooth infection [Unknown]
  - Sinusitis [Unknown]

NARRATIVE: CASE EVENT DATE: 202104
